FAERS Safety Report 9005635 (Version 2)
Quarter: 2013Q1

REPORT INFORMATION
  Report Type: Report from Study
  Country: CA (occurrence: CA)
  Receive Date: 20130109
  Receipt Date: 20130114
  Transmission Date: 20140127
  Serious: Yes (Hospitalization, Other)
  Sender: FDA-Public Use
  Company Number: CA-ABBOTT-13P-028-1031400-00

PATIENT
  Sex: Male

DRUGS (5)
  1. HUMIRA [Suspect]
     Indication: PRODUCT USED FOR UNKNOWN INDICATION
     Route: 058
     Dates: start: 20090809, end: 201209
  2. HUMIRA [Suspect]
     Route: 058
     Dates: start: 201212
  3. CORTISONE [Concomitant]
     Indication: ARTHRITIS
     Route: 058
  4. ARTHROTEC [Concomitant]
     Indication: ARTHRITIS
     Route: 048
  5. TYLENOL 3 (ACETAMINOPHEN + CODEINE) [Concomitant]
     Indication: ARTHRITIS
     Route: 048

REACTIONS (14)
  - Malaise [Unknown]
  - Joint swelling [Not Recovered/Not Resolved]
  - Joint swelling [Not Recovered/Not Resolved]
  - Arthralgia [Not Recovered/Not Resolved]
  - Mobility decreased [Not Recovered/Not Resolved]
  - Local swelling [Not Recovered/Not Resolved]
  - Neck pain [Not Recovered/Not Resolved]
  - Pain in jaw [Not Recovered/Not Resolved]
  - Mastication disorder [Not Recovered/Not Resolved]
  - Infection [Unknown]
  - Lymphadenopathy [Unknown]
  - Bronchitis [Recovered/Resolved]
  - Immune system disorder [Unknown]
  - Joint swelling [Not Recovered/Not Resolved]
